FAERS Safety Report 4660806-0 (Version None)
Quarter: 2005Q2

REPORT INFORMATION
  Report Type: 
  Country: None (occurrence: None)
  Receive Date: 20050511
  Receipt Date: 20050504
  Transmission Date: 20051028
  Serious: Yes (Disabling)
  Sender: FDA-Public Use
  Company Number: 212008

PATIENT
  Age: 67 Year
  Sex: Female
  Weight: 83.4 kg

DRUGS (18)
  1. AVASTIN [Suspect]
     Indication: SMALL CELL LUNG CANCER STAGE UNSPECIFIED
     Dosage: 850 MG, INTRAVENOUS
     Route: 042
     Dates: start: 20040809
  2. RADIATION THERAPY (RADIATION THERAPY) [Suspect]
     Indication: SMALL CELL LUNG CANCER STAGE UNSPECIFIED
     Dosage: TOPICAL
     Route: 061
     Dates: start: 20040519, end: 20040715
  3. IRINOTECAN HCL [Concomitant]
  4. CARBOPLATIN [Concomitant]
  5. PEPCID [Concomitant]
  6. TESSALON [Concomitant]
  7. ZANTAC [Concomitant]
  8. CLARITIN [Concomitant]
  9. LIPITOR [Concomitant]
  10. PROZAC [Concomitant]
  11. ATIVAN [Concomitant]
  12. CARDIZEM [Concomitant]
  13. SYNTHROID [Concomitant]
  14. REGLAN [Concomitant]
  15. SPECTRACEF (CEFDITOREN) [Concomitant]
  16. ZYRTEC [Concomitant]
  17. XANAX [Concomitant]
  18. WHOLE BRAIN RADIATION (RADIATION THERAPY) [Concomitant]

REACTIONS (9)
  - ATELECTASIS [None]
  - BALANCE DISORDER [None]
  - CHEST PAIN [None]
  - NAUSEA [None]
  - PNEUMONITIS [None]
  - RADIATION PNEUMONITIS [None]
  - SCAR [None]
  - THERAPY NON-RESPONDER [None]
  - VOMITING [None]
